FAERS Safety Report 15028854 (Version 1)
Quarter: 2018Q2

REPORT INFORMATION
  Report Type: Spontaneous
  Country: US (occurrence: US)
  Receive Date: 20180619
  Receipt Date: 20180619
  Transmission Date: 20180711
  Serious: No
  Sender: FDA-Public Use
  Company Number: US-SA-2018SA156863

PATIENT
  Age: 73 Year
  Sex: Female

DRUGS (2)
  1. ALIROCUMAB PREFILLED PEN [Suspect]
     Active Substance: ALIROCUMAB
     Dosage: 150 MG
  2. ALIROCUMAB [Suspect]
     Active Substance: ALIROCUMAB
     Dosage: 150 MG

REACTIONS (2)
  - Drug dose omission [Unknown]
  - Device issue [Unknown]
